FAERS Safety Report 8654306 (Version 2)
Quarter: 2013Q4

REPORT INFORMATION
  Report Type: Spontaneous
  Country: JP (occurrence: JP)
  Receive Date: 20120709
  Receipt Date: 20131105
  Transmission Date: 20140711
  Serious: No
  Sender: FDA-Public Use
  Company Number: JP-MSD JAPAN-1207USA00049

PATIENT
  Sex: 0

DRUGS (2)
  1. FOSAMAC TABLETS 35MG [Suspect]
     Dosage: 35 MG, QW
     Route: 048
     Dates: start: 20120626, end: 20120626
  2. FOSAMAC TABLETS 35MG [Suspect]
     Dosage: 35 MG, QD
     Route: 048
     Dates: start: 20120627, end: 20120627

REACTIONS (4)
  - Accidental overdose [Unknown]
  - Inappropriate schedule of drug administration [Unknown]
  - Nausea [Unknown]
  - Dizziness [Unknown]
